FAERS Safety Report 24670201 (Version 2)
Quarter: 2024Q4

REPORT INFORMATION
  Report Type: Spontaneous
  Country: US (occurrence: US)
  Receive Date: 20241127
  Receipt Date: 20241205
  Transmission Date: 20250115
  Serious: Yes (Other)
  Sender: REGENERON
  Company Number: US-REGENERON PHARMACEUTICALS, INC.-2024-160274

PATIENT
  Age: 49 Year
  Sex: Male

DRUGS (3)
  1. EYLEA [Suspect]
     Active Substance: AFLIBERCEPT
     Indication: Diabetic retinal oedema
     Dosage: UNK, RIGHT EYE, FORMULATION: PFS GERRESHEIMER
  2. EYLEA [Suspect]
     Active Substance: AFLIBERCEPT
     Dosage: UNK, LEFT EYE, FORMULATION: PFS GERRESHEIMER
  3. EYLEA [Suspect]
     Active Substance: AFLIBERCEPT
     Dosage: UNK, RIGHT EYE FORMULATION: PFS GERRESHEIMER
     Dates: start: 20241114

REACTIONS (3)
  - Hypoxia [Not Recovered/Not Resolved]
  - Vitritis [Not Recovered/Not Resolved]
  - Visual acuity reduced [Recovering/Resolving]

NARRATIVE: CASE EVENT DATE: 20241101
